FAERS Safety Report 24386492 (Version 3)
Quarter: 2025Q2

REPORT INFORMATION
  Report Type: Spontaneous
  Country: CA (occurrence: CA)
  Receive Date: 20241002
  Receipt Date: 20250404
  Transmission Date: 20250717
  Serious: Yes (Death, Other)
  Sender: ACCORD
  Company Number: None

PATIENT
  Age: 70 Year
  Sex: Female

DRUGS (10)
  1. HYDROXYCHLOROQUINE [Suspect]
     Active Substance: HYDROXYCHLOROQUINE
     Indication: Lichen planus
  2. METHOTREXATE [Suspect]
     Active Substance: METHOTREXATE
     Indication: Lichen planus
  3. ACITRETIN [Suspect]
     Active Substance: ACITRETIN
     Indication: Lichen planus
  4. AZATHIOPRINE [Suspect]
     Active Substance: AZATHIOPRINE
     Indication: Lichen planus
  5. CYCLOSPORINE [Suspect]
     Active Substance: CYCLOSPORINE
     Indication: Lichen planus
  6. HUMAN IMMUNOGLOBULIN G [Suspect]
     Active Substance: HUMAN IMMUNOGLOBULIN G
     Indication: Lichen planus
     Route: 042
  7. SECUKINUMAB [Suspect]
     Active Substance: SECUKINUMAB
     Indication: Lichen planus
  8. SULFASALAZINE [Suspect]
     Active Substance: SULFASALAZINE
     Indication: Lichen planus
  9. UPADACITINIB [Suspect]
     Active Substance: UPADACITINIB
     Indication: Lichen planus
  10. UPADACITINIB [Concomitant]
     Active Substance: UPADACITINIB
     Indication: Lichen planus

REACTIONS (3)
  - Drug ineffective for unapproved indication [Fatal]
  - Off label use [Fatal]
  - Squamous cell carcinoma of the oral cavity [Fatal]
